FAERS Safety Report 7408426-9 (Version None)
Quarter: 2011Q2

REPORT INFORMATION
  Report Type: 
  Country: None (occurrence: None)
  Receive Date: 20110412
  Receipt Date: 20110331
  Transmission Date: 20111010
  Serious: Yes (Death)
  Sender: FDA-Public Use
  Company Number: US-MYLANLABS-2011S1005598

PATIENT
  Age: 45 Year
  Sex: Male
  Weight: 135.17 kg

DRUGS (11)
  1. FENTANYL-100 [Suspect]
     Indication: PAIN
     Dosage: CHANGES PATCHES Q2D
     Route: 062
  2. NAPROXEN [Concomitant]
  3. FENTANYL-100 [Suspect]
     Route: 062
  4. PROBENECID + COLCHICINE [Concomitant]
  5. GABAPENTIN [Concomitant]
  6. ALLOPURINOL [Concomitant]
  7. DIAZEPAM [Concomitant]
  8. PREDNISONE [Concomitant]
  9. LYRICA [Concomitant]
  10. MORPHINE [Suspect]
     Dates: end: 20100918
  11. CARISOPRODOL [Concomitant]

REACTIONS (1)
  - OVERDOSE [None]
